FAERS Safety Report 5233380-8 (Version None)
Quarter: 2007Q1

REPORT INFORMATION
  Report Type: 
  Country: None (occurrence: None)
  Receive Date: 20070206
  Receipt Date: 20070123
  Transmission Date: 20070707
  Serious: No
  Sender: FDA-Public Use
  Company Number: TAP2007Q00106

PATIENT
  Age: 73 Year
  Sex: Female

DRUGS (1)
  1. PREVPAC [Suspect]
     Indication: HELICOBACTER INFECTION
     Dosage: 0.5 CARD, 2 IN 1 D, PER ORAL
     Route: 048

REACTIONS (9)
  - ABDOMINAL PAIN [None]
  - ANORECTAL DISORDER [None]
  - DIARRHOEA [None]
  - DIZZINESS [None]
  - FLATULENCE [None]
  - HEADACHE [None]
  - NAUSEA [None]
  - PRURITUS [None]
  - VISUAL ACUITY REDUCED [None]
